FAERS Safety Report 14599414 (Version 1)
Quarter: 2018Q1

REPORT INFORMATION
  Report Type: Spontaneous
  Country: GB (occurrence: GB)
  Receive Date: 20180305
  Receipt Date: 20180305
  Transmission Date: 20180509
  Serious: Yes (Other)
  Sender: FDA-Public Use
  Company Number: GB-JNJFOC-20180239606

PATIENT
  Age: 69 Year
  Sex: Male
  Weight: 89.81 kg

DRUGS (3)
  1. DOXAZOSIN [Concomitant]
     Active Substance: DOXAZOSIN\DOXAZOSIN MESYLATE
     Route: 065
  2. PIZOTIFEN [Concomitant]
     Active Substance: PIZOTYLINE
     Indication: HEAD DISCOMFORT
     Route: 065
  3. XARELTO [Suspect]
     Active Substance: RIVAROXABAN
     Indication: POSTOPERATIVE CARE
     Route: 048

REACTIONS (1)
  - Head discomfort [Not Recovered/Not Resolved]

NARRATIVE: CASE EVENT DATE: 20171212
